FAERS Safety Report 5196030-5 (Version None)
Quarter: 2007Q1

REPORT INFORMATION
  Report Type: 
  Country: None (occurrence: None)
  Receive Date: 20070102
  Receipt Date: 20061219
  Transmission Date: 20070707
  Serious: Yes (Hospitalization, Other)
  Sender: FDA-Public Use
  Company Number: PHBS2006BE19653

PATIENT
  Age: 39 Year
  Sex: Female

DRUGS (9)
  1. LEPONEX [Suspect]
     Indication: PSYCHOTIC DISORDER
     Dosage: UNK, UNK
     Dates: start: 20061211
  2. LEPONEX [Suspect]
     Dosage: UNK, UNK
     Dates: start: 20060223, end: 20060929
  3. LEPONEX [Suspect]
     Dates: start: 20061016, end: 20061031
  4. LEPONEX [Suspect]
     Dates: start: 20061031, end: 20061130
  5. LEPONEX [Suspect]
     Dosage: UNK, UNK
     Dates: start: 20061130, end: 20061211
  6. CIPRALEX /DEN/ [Concomitant]
     Indication: MAJOR DEPRESSION
     Dates: start: 20061031
  7. EMCONCOR /BEL/ [Concomitant]
     Dosage: UNK, UNK
     Dates: start: 20061219
  8. DAFALGAN [Concomitant]
  9. CONTRACEPTIVES UNS [Concomitant]

REACTIONS (3)
  - APHASIA [None]
  - DRUG LEVEL FLUCTUATING [None]
  - PULMONARY EMBOLISM [None]
